FAERS Safety Report 8291508-X (Version None)
Quarter: 2012Q2

REPORT INFORMATION
  Report Type: 
  Country: None (occurrence: None)
  Receive Date: 20120417
  Receipt Date: 20120413
  Transmission Date: 20120825
  Serious: No
  Sender: FDA-Public Use
  Company Number: US-PFIZER INC-2012011472

PATIENT
  Sex: Female

DRUGS (2)
  1. IBUPROFEN (ADVIL) [Suspect]
     Indication: HEADACHE
     Dosage: 200MG FOUR CAPSULES, UNK
     Route: 048
  2. IBUPROFEN (ADVIL) [Suspect]
     Indication: MYALGIA

REACTIONS (1)
  - DIARRHOEA [None]
